FAERS Safety Report 17289067 (Version 1)
Quarter: 2020Q1

REPORT INFORMATION
  Report Type: Spontaneous
  Country: ES (occurrence: ES)
  Receive Date: 20200120
  Receipt Date: 20200120
  Transmission Date: 20200409
  Serious: Yes (Hospitalization)
  Sender: FDA-Public Use
  Company Number: ES-MYLANLABS-2020M1004493

PATIENT
  Age: 49 Year
  Sex: Female

DRUGS (1)
  1. BUPRENORPHINE. [Suspect]
     Active Substance: BUPRENORPHINE
     Indication: DRUG DEPENDENCE
     Route: 065

REACTIONS (5)
  - Withdrawal syndrome [Recovering/Resolving]
  - Cardiac failure [Unknown]
  - Hypotension [Unknown]
  - Acute coronary syndrome [Recovered/Resolved]
  - Stress cardiomyopathy [Recovering/Resolving]
